FAERS Safety Report 7584779-6 (Version None)
Quarter: 2011Q2

REPORT INFORMATION
  Report Type: 
  Country: None (occurrence: None)
  Receive Date: 20110630
  Receipt Date: 20110622
  Transmission Date: 20111010
  Serious: Yes (Other)
  Sender: FDA-Public Use
  Company Number: PHHY2011US56072

PATIENT
  Sex: Female

DRUGS (9)
  1. VITAMIN B COMPLEX CAP [Concomitant]
  2. MULTI-VITAMIN [Concomitant]
  3. SALSALATE [Concomitant]
     Dosage: ONCE A DAY AS NEEDED
  4. LISINOPRIL [Concomitant]
  5. RANITIDINE [Concomitant]
  6. HYDROCHLOROTHIAZIDE [Concomitant]
  7. SANDOSTATIN LAR [Suspect]
     Dosage: 140 MG, EVERY FOUR WEEKS
  8. ZOFRAN [Concomitant]
  9. HYDROCODONE [Concomitant]

REACTIONS (2)
  - NEOPLASM PROGRESSION [None]
  - FOOT FRACTURE [None]
